FAERS Safety Report 18662001 (Version 1)
Quarter: 2020Q4

REPORT INFORMATION
  Report Type: Report from Study
  Country: CA (occurrence: CA)
  Receive Date: 20201224
  Receipt Date: 20201224
  Transmission Date: 20210114
  Serious: Yes (Other)
  Sender: FDA-Public Use
  Company Number: CA-TAKEDA-2017TUS001959

PATIENT
  Age: 46 Year
  Sex: Female

DRUGS (4)
  1. VEDOLIZUMAB [Suspect]
     Active Substance: VEDOLIZUMAB
     Dosage: 300 MILLIGRAM
     Route: 042
  2. VEDOLIZUMAB [Suspect]
     Active Substance: VEDOLIZUMAB
     Indication: CROHN^S DISEASE
     Dosage: 300 MILLIGRAM
     Route: 042
     Dates: start: 20160621
  3. VEDOLIZUMAB [Suspect]
     Active Substance: VEDOLIZUMAB
     Dosage: 300 MILLIGRAM
     Route: 042
  4. VEDOLIZUMAB [Suspect]
     Active Substance: VEDOLIZUMAB
     Dosage: 300 MILLIGRAM
     Route: 042

REACTIONS (14)
  - Oropharyngeal pain [Not Recovered/Not Resolved]
  - Poor venous access [Not Recovered/Not Resolved]
  - Infusion site extravasation [Unknown]
  - Lower respiratory tract infection [Not Recovered/Not Resolved]
  - Infusion site coldness [Unknown]
  - Migraine [Not Recovered/Not Resolved]
  - Sinusitis [Not Recovered/Not Resolved]
  - Dehydration [Not Recovered/Not Resolved]
  - Chest pain [Not Recovered/Not Resolved]
  - Nausea [Unknown]
  - Productive cough [Not Recovered/Not Resolved]
  - Blood pressure increased [Unknown]
  - Illness [Not Recovered/Not Resolved]
  - Infusion site discomfort [Unknown]

NARRATIVE: CASE EVENT DATE: 2018
